FAERS Safety Report 6200606-3 (Version None)
Quarter: 2009Q2

REPORT INFORMATION
  Report Type: 
  Country: None (occurrence: None)
  Receive Date: 20090522
  Receipt Date: 20090518
  Transmission Date: 20091009
  Serious: Yes (Hospitalization)
  Sender: FDA-Public Use
  Company Number: US-GENENTECH-282737

PATIENT
  Sex: Female
  Weight: 88.18 kg

DRUGS (1)
  1. RITUXIMAB [Suspect]
     Indication: NON-HODGKIN'S LYMPHOMA
     Dosage: 5 UNK, Q21D
     Route: 042
     Dates: start: 20081007

REACTIONS (1)
  - FEBRILE NEUTROPENIA [None]
